FAERS Safety Report 12138566 (Version 1)
Quarter: 2016Q1

REPORT INFORMATION
  Report Type: Spontaneous
  Country: FR (occurrence: FR)
  Receive Date: 20160302
  Receipt Date: 20160302
  Transmission Date: 20160526
  Serious: Yes (Hospitalization, Other)
  Sender: FDA-Public Use
  Company Number: FR-PFIZER INC-2016117094

PATIENT
  Age: 85 Year
  Sex: Male

DRUGS (8)
  1. LEVEMIR [Concomitant]
     Active Substance: INSULIN DETEMIR
  2. BISOPROLOL [Concomitant]
     Active Substance: BISOPROLOL
  3. TAHOR [Suspect]
     Active Substance: ATORVASTATIN CALCIUM
     Dosage: 10 MG, 1X/DAY
     Route: 048
  4. SINTROM [Interacting]
     Active Substance: ACENOCOUMAROL
     Dosage: 2 MG, 1X/DAY
     Route: 048
     Dates: end: 20151220
  5. LASILIX /00032601/ [Concomitant]
     Active Substance: FUROSEMIDE
  6. XELEVIA [Concomitant]
     Active Substance: SITAGLIPTIN PHOSPHATE
  7. METFORMIN [Concomitant]
     Active Substance: METFORMIN HYDROCHLORIDE
  8. VALSARTAN. [Concomitant]
     Active Substance: VALSARTAN

REACTIONS (4)
  - Cerebral haemorrhage [Recovered/Resolved with Sequelae]
  - Fall [Unknown]
  - Renal failure [Unknown]
  - Drug interaction [Unknown]

NARRATIVE: CASE EVENT DATE: 20151220
